FAERS Safety Report 5852451-6 (Version None)
Quarter: 2008Q3

REPORT INFORMATION
  Report Type: 
  Country: None (occurrence: None)
  Receive Date: 20080819
  Receipt Date: 20080814
  Transmission Date: 20090109
  Serious: Yes (Other)
  Sender: FDA-Public Use
  Company Number: 2007SP018043

PATIENT
  Age: 48 Year
  Sex: Male

DRUGS (9)
  1. PEG-INTRON [Suspect]
     Indication: HEPATITIS C
     Dosage: 120 MCG; QW; SC
     Route: 058
     Dates: start: 20061227, end: 20070828
  2. REBETOL [Suspect]
     Indication: HEPATITIS C
     Dosage: 1000 MG; QD; PO
     Route: 048
     Dates: start: 20061227, end: 20070228
  3. HCV-796 [Suspect]
     Indication: HEPATITIS C
     Dosage: 1000 MG; QD; PO
     Route: 048
     Dates: start: 20061227, end: 20070810
  4. EFFEXOR [Concomitant]
  5. ACETAMINOPHEN [Concomitant]
  6. RIBOFLAVIN TAB [Concomitant]
  7. VITAMIN B [Concomitant]
  8. IRON [Concomitant]
  9. METRONIDAZOLE [Concomitant]

REACTIONS (2)
  - DISEASE RECURRENCE [None]
  - HEPATITIS C VIRUS TEST [None]
